FAERS Safety Report 19713638 (Version 4)
Quarter: 2021Q4

REPORT INFORMATION
  Report Type: Report from Study
  Country: US (occurrence: US)
  Receive Date: 20210817
  Receipt Date: 20211230
  Transmission Date: 20220303
  Serious: Yes (Other)
  Sender: FDA-Public Use
  Company Number: US-ABBVIE-21K-163-4041430-00

PATIENT
  Sex: Male

DRUGS (5)
  1. IMBRUVICA [Suspect]
     Active Substance: IBRUTINIB
     Indication: Chronic lymphocytic leukaemia
     Route: 048
  2. IMBRUVICA [Suspect]
     Active Substance: IBRUTINIB
     Indication: Chronic lymphocytic leukaemia
     Dosage: DOSE DECREASED
     Route: 048
     Dates: start: 202011, end: 2020
  3. IMBRUVICA [Suspect]
     Active Substance: IBRUTINIB
     Route: 048
     Dates: start: 20201209
  4. IMBRUVICA [Suspect]
     Active Substance: IBRUTINIB
     Route: 048
  5. PREDNISONE [Concomitant]
     Active Substance: PREDNISONE
     Indication: Product used for unknown indication

REACTIONS (21)
  - Macular degeneration [Unknown]
  - Blood iron decreased [Unknown]
  - Sciatica [Unknown]
  - Weight decreased [Unknown]
  - Arthropathy [Unknown]
  - Gait disturbance [Unknown]
  - Asthenia [Unknown]
  - Mood swings [Unknown]
  - Nerve compression [Unknown]
  - Limb injury [Unknown]
  - Muscular weakness [Unknown]
  - Taste disorder [Unknown]
  - Hip arthroplasty [Unknown]
  - Weight increased [Unknown]
  - Hypoacusis [Unknown]
  - Depression [Unknown]
  - Frustration tolerance decreased [Unknown]
  - Back pain [Unknown]
  - Fall [Unknown]
  - Fatigue [Unknown]
  - Fatigue [Unknown]
